FAERS Safety Report 24709661 (Version 1)
Quarter: 2024Q4

REPORT INFORMATION
  Report Type: Report from Study
  Country: CA (occurrence: CA)
  Receive Date: 20241209
  Receipt Date: 20241209
  Transmission Date: 20250115
  Serious: Yes (Other)
  Sender: REGENERON
  Company Number: CA-BAYER-2024A170999

PATIENT
  Sex: Female

DRUGS (3)
  1. EYLEA [Suspect]
     Active Substance: AFLIBERCEPT
     Indication: Age-related macular degeneration
     Dosage: 2MG/0.05ML, SOLUTION FOR INJECTION, 40 MG/ML
     Route: 031
     Dates: start: 20231206
  2. EYLEA [Suspect]
     Active Substance: AFLIBERCEPT
     Indication: Neovascular age-related macular degeneration
     Dosage: LEFT EYE (PATIENT TREATED ON BOTH EYES), SOLUTION FOR INJECTION, 40 MG/ML
     Route: 031
     Dates: start: 20240628, end: 20240628
  3. EYLEA [Suspect]
     Active Substance: AFLIBERCEPT
     Dosage: RIGHT EYE (PATIENT TREATED ON BOTH EYES), SOLUTION FOR INJECTION, 40 MG/ML
     Route: 031
     Dates: start: 20240628, end: 20240628

REACTIONS (2)
  - Blindness [Unknown]
  - Product administered at inappropriate site [Unknown]

NARRATIVE: CASE EVENT DATE: 20240628
